FAERS Safety Report 24770405 (Version 1)
Quarter: 2024Q4

REPORT INFORMATION
  Report Type: Spontaneous
  Country: US (occurrence: None)
  Receive Date: 20241219
  Receipt Date: 20241219
  Transmission Date: 20250115
  Serious: Yes (Hospitalization)
  Sender: Public
  Company Number: None

PATIENT
  Age: 56 Year
  Sex: Female
  Weight: 97.6 kg

DRUGS (1)
  1. TRODELVY [Suspect]
     Active Substance: SACITUZUMAB GOVITECAN-HZIY
     Indication: Breast cancer

REACTIONS (8)
  - Febrile neutropenia [None]
  - Bacteraemia [None]
  - Fungaemia [None]
  - Systemic candida [None]
  - Septic shock [None]
  - Pancytopenia [None]
  - Gastrointestinal haemorrhage [None]
  - Acute respiratory failure [None]

NARRATIVE: CASE EVENT DATE: 20241116
